FAERS Safety Report 9707674 (Version 1)
Quarter: 2013Q4

REPORT INFORMATION
  Report Type: Spontaneous
  Country: JP (occurrence: JP)
  Receive Date: 20131125
  Receipt Date: 20131125
  Transmission Date: 20140711
  Serious: Yes (Hospitalization)
  Sender: FDA-Public Use
  Company Number: JP-ACTELION-A-CH2013-91495

PATIENT
  Age: 72 Year
  Sex: 0

DRUGS (12)
  1. TRACLEER [Suspect]
     Indication: PULMONARY ARTERIAL HYPERTENSION
     Dosage: 62.5 MG, BID
     Route: 048
     Dates: end: 201311
  2. TADALAFIL [Concomitant]
  3. BERAPROST SODIUM [Concomitant]
  4. CLOPIDOGREL SULFATE [Concomitant]
  5. WARFARIN POTASSIUM [Concomitant]
  6. TAMSULOSIN HYDROCHLORIDE [Concomitant]
  7. CANDESARTAN CILEXETIL [Concomitant]
  8. LANSOPRAZOLE [Concomitant]
  9. SOLIFENACIN SUCCINATE [Concomitant]
  10. KALLIDINOGENASE [Concomitant]
  11. ASPIRIN [Concomitant]
  12. FUROSEMIDE [Concomitant]

REACTIONS (2)
  - Bone marrow failure [Recovered/Resolved]
  - Pancytopenia [Recovered/Resolved]
